FAERS Safety Report 9210312 (Version 4)
Quarter: 2013Q3

REPORT INFORMATION
  Report Type: Report from Study
  Country: FR (occurrence: FR)
  Receive Date: 20130404
  Receipt Date: 20130702
  Transmission Date: 20140515
  Serious: Yes (Hospitalization)
  Sender: FDA-Public Use
  Company Number: FR-ROCHE-1209910

PATIENT
  Age: 54 Year
  Sex: Male
  Weight: 57 kg

DRUGS (6)
  1. ISENTRESS [Concomitant]
     Indication: HIV INFECTION
     Route: 048
     Dates: start: 20121205
  2. KIVEXA [Concomitant]
     Indication: HIV INFECTION
     Route: 065
     Dates: start: 20080410
  3. PEG-INTERFERON ALFA 2A [Suspect]
     Indication: HEPATITIS C
     Route: 058
     Dates: start: 20130201
  4. RIBAVIRIN [Suspect]
     Indication: HEPATITIS C
     Route: 048
     Dates: start: 20130201
  5. TELAPREVIR [Suspect]
     Indication: HEPATITIS C
     Route: 048
     Dates: start: 20130201, end: 20130419
  6. VIREAD [Concomitant]
     Indication: HIV INFECTION
     Route: 048
     Dates: start: 20071110

REACTIONS (1)
  - Pneumothorax [Recovered/Resolved]
